FAERS Safety Report 5415278-5 (Version None)
Quarter: 2007Q3

REPORT INFORMATION
  Report Type: 
  Country: None (occurrence: None)
  Receive Date: 20070815
  Receipt Date: 20070807
  Transmission Date: 20080115
  Serious: Yes (Hospitalization)
  Sender: FDA-Public Use
  Company Number: US-AMGEN-KDL226247

PATIENT
  Sex: Female

DRUGS (2)
  1. ENBREL [Suspect]
     Indication: RHEUMATOID ARTHRITIS
     Route: 058
     Dates: start: 20070405
  2. ARAVA [Concomitant]
     Dates: start: 20010101

REACTIONS (5)
  - ASTHENIA [None]
  - BRONCHITIS [None]
  - FURUNCLE [None]
  - PERICARDIAL EFFUSION [None]
  - PNEUMONIA [None]
